FAERS Safety Report 8887771 (Version 1)
Quarter: 2012Q4

REPORT INFORMATION
  Report Type: 
  Country: US (occurrence: US)
  Receive Date: 20121106
  Receipt Date: 20121106
  Transmission Date: 20130627
  Serious: No
  Sender: FDA-Public Use
  Company Number: US-ASTRAZENECA-2012SE80511

PATIENT
  Age: 42 Year
  Sex: Male

DRUGS (1)
  1. NEXIUM [Suspect]
     Route: 048

REACTIONS (5)
  - Feeling abnormal [Unknown]
  - Dyspepsia [Unknown]
  - Chest discomfort [Unknown]
  - Adverse event [Unknown]
  - Drug dose omission [Unknown]
